FAERS Safety Report 8415653-0 (Version None)
Quarter: 2012Q2

REPORT INFORMATION
  Report Type: 
  Country: None (occurrence: None)
  Receive Date: 20120606
  Receipt Date: 20120601
  Transmission Date: 20120825
  Serious: Yes (Hospitalization)
  Sender: FDA-Public Use
  Company Number: PHHY2012VE047064

PATIENT
  Sex: Female

DRUGS (4)
  1. SESAME OIL [Concomitant]
     Dosage: UNK UKN, UNK
  2. ASMAMIL [Concomitant]
  3. ZOLEDRONOC ACID [Suspect]
     Indication: OSTEOPOROSIS
     Dosage: 5 MG, UNK
     Route: 042
     Dates: start: 20120411
  4. BENICAR [Concomitant]
     Indication: HYPERTENSION
     Dosage: 20 MG, QD
     Route: 048
     Dates: start: 20090101

REACTIONS (2)
  - PAIN [None]
  - COUGH [None]
